FAERS Safety Report 6711180-7 (Version None)
Quarter: 2010Q2

REPORT INFORMATION
  Report Type: 
  Country: None (occurrence: None)
  Receive Date: 20100505
  Receipt Date: 20100504
  Transmission Date: 20101027
  Serious: Yes (Other)
  Sender: FDA-Public Use
  Company Number: US-ASTRAZENECA-2009UW17986

PATIENT
  Age: 364 Month
  Sex: Male
  Weight: 91.6 kg

DRUGS (27)
  1. SEROQUEL [Suspect]
     Indication: INSOMNIA
     Dosage: 200 TO 400 MG
     Route: 048
     Dates: start: 20060101, end: 20070101
  2. SEROQUEL [Suspect]
     Indication: AFFECTIVE DISORDER
     Dosage: 200 TO 400 MG
     Route: 048
     Dates: start: 20060101, end: 20070101
  3. SEROQUEL [Suspect]
     Indication: ANXIETY
     Dosage: 200 TO 400 MG
     Route: 048
     Dates: start: 20060101, end: 20070101
  4. SEROQUEL [Suspect]
     Route: 048
     Dates: start: 20060601, end: 20061001
  5. SEROQUEL [Suspect]
     Route: 048
     Dates: start: 20060601, end: 20061001
  6. SEROQUEL [Suspect]
     Route: 048
     Dates: start: 20060601, end: 20061001
  7. SEROQUEL [Suspect]
     Route: 048
     Dates: start: 20061027, end: 20070713
  8. SEROQUEL [Suspect]
     Route: 048
     Dates: start: 20061027, end: 20070713
  9. SEROQUEL [Suspect]
     Route: 048
     Dates: start: 20061027, end: 20070713
  10. SEROQUEL [Suspect]
     Route: 048
     Dates: start: 20070713, end: 20071026
  11. SEROQUEL [Suspect]
     Route: 048
     Dates: start: 20070713, end: 20071026
  12. SEROQUEL [Suspect]
     Route: 048
     Dates: start: 20070713, end: 20071026
  13. SEROQUEL [Suspect]
     Route: 048
     Dates: start: 20070810
  14. SEROQUEL [Suspect]
     Route: 048
     Dates: start: 20070810
  15. SEROQUEL [Suspect]
     Route: 048
     Dates: start: 20070810
  16. XANAX [Concomitant]
     Indication: ANXIETY
     Route: 048
     Dates: start: 20060123, end: 20070413
  17. REMERON [Concomitant]
  18. VISTARIL [Concomitant]
  19. EFFEXOR XR [Concomitant]
     Indication: DEPRESSION
     Route: 048
     Dates: end: 20061027
  20. EFFEXOR XR [Concomitant]
     Route: 048
  21. ASPIRIN [Concomitant]
     Indication: CARDIAC DISORDER
  22. PAXIL [Concomitant]
     Indication: DEPRESSION
     Route: 048
     Dates: start: 20070413, end: 20070810
  23. BUSPAR [Concomitant]
     Indication: ANXIETY
     Dates: start: 20070413, end: 20070427
  24. BUSPAR [Concomitant]
     Indication: ANGER
     Dates: start: 20070413, end: 20070427
  25. BUSPAR [Concomitant]
     Indication: AFFECTIVE DISORDER
     Dates: start: 20070413, end: 20070427
  26. NEURONTIN [Concomitant]
     Indication: AFFECTIVE DISORDER
     Route: 048
     Dates: start: 20070427, end: 20070713
  27. TRAZODONE HCL [Concomitant]
     Indication: INSOMNIA
     Dosage: 1-2 PO QHS
     Route: 048
     Dates: start: 20050812

REACTIONS (3)
  - DIABETES MELLITUS INADEQUATE CONTROL [None]
  - DIABETIC NEPHROPATHY [None]
  - TYPE 2 DIABETES MELLITUS [None]
